FAERS Safety Report 8176198-9 (Version None)
Quarter: 2012Q1

REPORT INFORMATION
  Report Type: 
  Country: None (occurrence: None)
  Receive Date: 20120301
  Receipt Date: 20120221
  Transmission Date: 20120608
  Serious: Yes (Other)
  Sender: FDA-Public Use
  Company Number: CA-JNJFOC-20120211059

PATIENT
  Sex: Male
  Weight: 77 kg

DRUGS (4)
  1. REMICADE [Suspect]
     Route: 042
     Dates: start: 20120221, end: 20120221
  2. SOLU-CORTEF [Concomitant]
     Indication: PREMEDICATION
     Dosage: 200 M
     Route: 042
  3. REMICADE [Suspect]
     Indication: CROHN'S DISEASE
     Route: 042
  4. BENADRYL [Concomitant]
     Indication: PREMEDICATION
     Route: 042

REACTIONS (2)
  - HYPOAESTHESIA [None]
  - LIP SWELLING [None]
